FAERS Safety Report 5773613-2 (Version None)
Quarter: 2008Q2

REPORT INFORMATION
  Report Type: 
  Country: None (occurrence: None)
  Receive Date: 20080616
  Receipt Date: 20080606
  Transmission Date: 20081010
  Serious: Yes (Hospitalization, Other)
  Sender: FDA-Public Use
  Company Number: US-AMGEN-QUU285287

PATIENT
  Sex: Female

DRUGS (1)
  1. ENBREL [Suspect]
     Indication: RHEUMATOID ARTHRITIS
     Route: 058

REACTIONS (11)
  - CORONARY ARTERIAL STENT INSERTION [None]
  - DRUG HYPERSENSITIVITY [None]
  - DYSPNOEA [None]
  - FATIGUE [None]
  - FUNGAL INFECTION [None]
  - HYPERSENSITIVITY [None]
  - INSOMNIA [None]
  - PAIN IN JAW [None]
  - RASH [None]
  - SLEEP APNOEA SYNDROME [None]
  - WEIGHT INCREASED [None]
